FAERS Safety Report 6837544-9 (Version None)
Quarter: 2010Q3

REPORT INFORMATION
  Report Type: 
  Country: None (occurrence: None)
  Receive Date: 20100713
  Receipt Date: 20070516
  Transmission Date: 20110219
  Serious: Yes (Other)
  Sender: FDA-Public Use
  Company Number: US-PFIZER INC-2007041020

PATIENT
  Sex: Female
  Weight: 74.8 kg

DRUGS (2)
  1. CHANTIX [Suspect]
     Indication: SMOKING CESSATION THERAPY
     Dates: start: 20070508
  2. OMNICEF [Suspect]

REACTIONS (7)
  - DRUG HYPERSENSITIVITY [None]
  - DYSPNOEA [None]
  - FLATULENCE [None]
  - NAUSEA [None]
  - PRURITUS [None]
  - RASH [None]
  - SWELLING [None]
